FAERS Safety Report 21672761 (Version 1)
Quarter: 2022Q4

REPORT INFORMATION
  Report Type: Report from Study
  Country: US (occurrence: US)
  Receive Date: 20221202
  Receipt Date: 20221202
  Transmission Date: 20230113
  Serious: No
  Sender: FDA-Public Use
  Company Number: US-ABBVIE-4220791

PATIENT
  Sex: Male

DRUGS (1)
  1. VENCLEXTA [Suspect]
     Active Substance: VENETOCLAX
     Indication: Extranodal marginal zone B-cell lymphoma (MALT type)
     Route: 048
     Dates: end: 20221129

REACTIONS (1)
  - Full blood count abnormal [Not Recovered/Not Resolved]
